FAERS Safety Report 6805791-8 (Version None)
Quarter: 2010Q2

REPORT INFORMATION
  Report Type: 
  Country: None (occurrence: None)
  Receive Date: 20100628
  Receipt Date: 20100614
  Transmission Date: 20101027
  Serious: Yes (Hospitalization, Other)
  Sender: FDA-Public Use
  Company Number: DE-MYLANLABS-2010S1007055

PATIENT
  Age: 82 Year
  Sex: Female

DRUGS (1)
  1. CLOZAPINE [Suspect]
     Indication: INTENTIONAL OVERDOSE

REACTIONS (3)
  - INTENTIONAL OVERDOSE [None]
  - LETHARGY [None]
  - SUICIDE ATTEMPT [None]
